FAERS Safety Report 21493828 (Version 1)
Quarter: 2022Q4

REPORT INFORMATION
  Report Type: Spontaneous
  Country: HU (occurrence: HU)
  Receive Date: 20221021
  Receipt Date: 20221021
  Transmission Date: 20230113
  Serious: Yes (Hospitalization)
  Sender: FDA-Public Use
  Company Number: None

PATIENT
  Age: 73 Year
  Sex: Male
  Weight: 90.9 kg

DRUGS (15)
  1. GEMCITABINE [Suspect]
     Active Substance: GEMCITABINE
     Indication: Diffuse large B-cell lymphoma
     Dosage: UNIT DOSE : 1000 MG/M2  , DURATION: 1 DAY
     Dates: start: 20220712, end: 20220712
  2. GEMCITABINE [Suspect]
     Active Substance: GEMCITABINE
     Dosage: UNIT DOSE : 750  MG/M2  , DURATION : 15 DAYS
     Dates: start: 20220809, end: 20220823
  3. OXALIPLATIN [Suspect]
     Active Substance: OXALIPLATIN
     Indication: Diffuse large B-cell lymphoma
     Dosage: UNIT DOSE : 100 MG/M2 , DURATION :  15 DAYS
     Dates: start: 20220809, end: 20220823
  4. OXALIPLATIN [Suspect]
     Active Substance: OXALIPLATIN
     Dosage: UNIT DOSE : 1000 MG/M2    , DURATION :  1 DAY
     Dates: start: 20220712, end: 20220712
  5. RITUXIMAB [Suspect]
     Active Substance: RITUXIMAB
     Indication: Diffuse large B-cell lymphoma
     Dosage: DATE OF LAST DOSE PRIOR TO EVENT: 22/AUG/2022 , UNIT DOSE :  375 MG/M2  , FREQUENCY TIME : 2 WEEKS ,
     Dates: start: 20220808, end: 20220822
  6. RITUXIMAB [Suspect]
     Active Substance: RITUXIMAB
     Dosage: DATE OF LAST DOSE PRIOR TO EVENT: 22/AUG/2022 ,  UNIT DOSE : 375 MG/M2  , FREQUENCY TIME : 2 WEEKS ,
     Dates: start: 20220711, end: 20220711
  7. FEBUXOSTAT [Concomitant]
     Active Substance: FEBUXOSTAT
     Indication: Product used for unknown indication
     Dates: start: 20220711
  8. BISOPROLOL [Concomitant]
     Active Substance: BISOPROLOL
     Indication: Product used for unknown indication
     Dates: start: 202202
  9. PANTOPRAZOLE [Concomitant]
     Active Substance: PANTOPRAZOLE
     Indication: Product used for unknown indication
  10. PANTOPRAZOLE [Concomitant]
     Active Substance: PANTOPRAZOLE
     Dates: start: 20220622
  11. CHLOROPYRAMINE HYDROCHLORIDE [Concomitant]
     Active Substance: CHLOROPYRAMINE HYDROCHLORIDE
     Indication: Product used for unknown indication
     Dosage: DURATION : 1 DAYS
     Dates: start: 20220808, end: 20220808
  12. FILGRASTIM [Concomitant]
     Active Substance: FILGRASTIM
     Indication: Product used for unknown indication
     Dosage: DURATION : 1 DAYS
     Dates: start: 20220816, end: 20220816
  13. CHLOROPYRAMINE [Concomitant]
     Active Substance: CHLOROPYRAMINE
     Indication: Product used for unknown indication
     Dosage: DURATION : 1 DAYS
     Dates: start: 20220822, end: 20220822
  14. ACETAMINOPHEN [Concomitant]
     Active Substance: ACETAMINOPHEN
     Indication: Product used for unknown indication
     Dosage: DURATION : 15 DAYS
     Dates: start: 20220808, end: 20220822
  15. ONDANSETRON HYDROCHLORIDE [Concomitant]
     Active Substance: ONDANSETRON HYDROCHLORIDE
     Indication: Product used for unknown indication
     Dosage: DURATION : 1 DAYS
     Dates: start: 20220809, end: 20220809

REACTIONS (1)
  - Febrile neutropenia [Not Recovered/Not Resolved]

NARRATIVE: CASE EVENT DATE: 20220828
